FAERS Safety Report 24144465 (Version 1)
Quarter: 2024Q3

REPORT INFORMATION
  Report Type: Spontaneous
  Country: US (occurrence: US)
  Receive Date: 20240728
  Receipt Date: 20240728
  Transmission Date: 20241017
  Serious: No
  Sender: DR REDDYS
  Company Number: US-E2BLSMVVAL-SPO/USA/24/0010563

PATIENT
  Sex: Female

DRUGS (1)
  1. FLUOROURACIL [Suspect]
     Active Substance: FLUOROURACIL
     Indication: Product used for unknown indication
     Dosage: 0.0005 AND USED TWICE

REACTIONS (4)
  - Administration site swelling [Unknown]
  - Administration site dryness [Unknown]
  - Skin disorder [Unknown]
  - Expired product administered [Unknown]
